FAERS Safety Report 5133447-9 (Version None)
Quarter: 2006Q4

REPORT INFORMATION
  Report Type: 
  Country: None (occurrence: None)
  Receive Date: 20061024
  Receipt Date: 20061015
  Transmission Date: 20070319
  Serious: Yes (Hospitalization)
  Sender: FDA-Public Use
  Company Number: US-AMGEN-STX197025

PATIENT
  Sex: Female

DRUGS (2)
  1. ENBREL [Suspect]
     Indication: RHEUMATOID ARTHRITIS
     Route: 058
     Dates: start: 20030401
  2. INFLUENZA VACCINE [Concomitant]
     Dates: start: 20061001

REACTIONS (4)
  - CHILLS [None]
  - FLUSHING [None]
  - PYREXIA [None]
  - SURGERY [None]
